FAERS Safety Report 5239167-4 (Version None)
Quarter: 2007Q1

REPORT INFORMATION
  Report Type: 
  Country: None (occurrence: None)
  Receive Date: 20061208
  Receipt Date: 20050311
  Transmission Date: 20070707
  Serious: Yes (Other)
  Sender: FDA-Public Use
  Company Number: 2005UW03971

PATIENT
  Age: 76 Year
  Sex: Female
  Weight: 58.059 kg

DRUGS (6)
  1. CRESTOR [Suspect]
     Indication: BLOOD CHOLESTEROL INCREASED
     Dosage: 20 MG PO
     Route: 048
     Dates: start: 20041001
  2. COUMADIN [Concomitant]
  3. BETAPACE [Concomitant]
  4. FOSAMAX [Concomitant]
  5. THYROID TAB [Concomitant]
  6. CELEXA [Concomitant]

REACTIONS (4)
  - ATRIAL FIBRILLATION [None]
  - DIZZINESS [None]
  - DYSPNOEA [None]
  - HYPERTENSION [None]
